FAERS Safety Report 17031118 (Version 1)
Quarter: 2019Q4

REPORT INFORMATION
  Report Type: Spontaneous
  Country: US (occurrence: US)
  Receive Date: 20191114
  Receipt Date: 20191114
  Transmission Date: 20200122
  Serious: Yes (Death, Life-Threatening, Other)
  Sender: FDA-Public Use
  Company Number: US-AMRING PHARMACEUTICALS INC.-2019US011136

PATIENT
  Age: 58 Year
  Sex: Male

DRUGS (1)
  1. SUCCINYLCHOLINE VIAL [Suspect]
     Active Substance: SUCCINYLCHOLINE
     Indication: PRODUCT USED FOR UNKNOWN INDICATION
     Dosage: 216 MG
     Route: 065

REACTIONS (7)
  - Hypomagnesaemia [None]
  - Electrocardiogram QRS complex prolonged [Recovered/Resolved]
  - Torsade de pointes [Fatal]
  - Pulseless electrical activity [Recovered/Resolved]
  - Blood pH decreased [Unknown]
  - Hypocalcaemia [None]
  - Hyperkalaemia [None]
